FAERS Safety Report 5339106-1 (Version None)
Quarter: 2007Q2

REPORT INFORMATION
  Report Type: 
  Country: None (occurrence: None)
  Receive Date: 20070530
  Receipt Date: 20070518
  Transmission Date: 20071010
  Serious: Yes (Life-Threatening, Disabling, Other)
  Sender: FDA-Public Use
  Company Number: GB-PFIZER INC-2007040858

PATIENT
  Age: 41 Year
  Sex: Male

DRUGS (10)
  1. LIPITOR [Suspect]
     Route: 048
     Dates: start: 20070301, end: 20070412
  2. ASCORBIC ACID [Concomitant]
     Route: 048
  3. BENDROFLUMETHIAZIDE [Concomitant]
     Route: 048
  4. CALCICHEW-D3 [Concomitant]
     Route: 048
  5. DARBEPOETIN ALFA [Concomitant]
     Route: 058
  6. ESOMEPRAZOLE MAGNESIUM [Concomitant]
     Route: 048
  7. FERROUS SULFATE TAB [Concomitant]
     Route: 048
  8. FOLIC ACID [Concomitant]
     Route: 048
  9. LISINOPRIL [Concomitant]
     Route: 048
  10. VITAMIN B COMPLEX CAP [Concomitant]
     Route: 048

REACTIONS (5)
  - FATIGUE [None]
  - MUSCULOSKELETAL DISCOMFORT [None]
  - MYOPATHY [None]
  - SENSATION OF HEAVINESS [None]
  - SOMNOLENCE [None]
